FAERS Safety Report 4891061-4 (Version None)
Quarter: 2006Q1

REPORT INFORMATION
  Report Type: 
  Country: None (occurrence: None)
  Receive Date: 20060123
  Receipt Date: 20060109
  Transmission Date: 20060701
  Serious: Yes (Hospitalization)
  Sender: FDA-Public Use
  Company Number: 2006006376

PATIENT
  Age: 49 Year
  Sex: Female
  Weight: 100.2449 kg

DRUGS (3)
  1. XANAX [Suspect]
     Indication: ILL-DEFINED DISORDER
     Dosage: ORAL
     Route: 048
     Dates: start: 20051220, end: 20051220
  2. PEG-INTRON [Suspect]
     Indication: HEPATITIS C
     Dosage: 150 MCG (1 IN 1 WK), SUBCUTANEOUS
     Route: 058
     Dates: start: 20050923, end: 20051219
  3. REBETOL [Suspect]
     Indication: HEPATITIS C
     Dosage: 1200 MG (1 IN 1 D), ORAL
     Route: 048
     Dates: start: 20050923, end: 20051219

REACTIONS (7)
  - ALCOHOL USE [None]
  - ALCOHOL WITHDRAWAL SYNDROME [None]
  - BIPOLAR DISORDER [None]
  - MAJOR DEPRESSION [None]
  - MIGRAINE [None]
  - OVERDOSE [None]
  - SUICIDE ATTEMPT [None]
